FAERS Safety Report 17253906 (Version 1)
Quarter: 2020Q1

REPORT INFORMATION
  Report Type: Spontaneous
  Country: FR (occurrence: FR)
  Receive Date: 20200109
  Receipt Date: 20200109
  Transmission Date: 20200409
  Serious: Yes (Death, Congenital Anomaly, Other)
  Sender: FDA-Public Use
  Company Number: NVSC2020FR003518

PATIENT

DRUGS (1)
  1. VALPROATE [Suspect]
     Active Substance: VALPROIC ACID
     Indication: FOETAL EXPOSURE DURING PREGNANCY
     Dosage: UNK, (MATERNAL DOSE)
     Route: 064

REACTIONS (2)
  - Foetal malformation [Fatal]
  - Foetal exposure during pregnancy [Fatal]
